FAERS Safety Report 8954106 (Version 4)
Quarter: 2013Q1

REPORT INFORMATION
  Report Type: Spontaneous
  Country: DE (occurrence: DE)
  Receive Date: 20121207
  Receipt Date: 20130314
  Transmission Date: 20140127
  Serious: Yes (Death, Life-Threatening, Hospitalization, Other)
  Sender: FDA-Public Use
  Company Number: DE-OTSUKA-EU-2012-10274

PATIENT
  Sex: Male
  Weight: 99 kg

DRUGS (16)
  1. PLETAL [Suspect]
     Dosage: UNK, UNKNOWN
     Route: 065
     Dates: start: 20120614, end: 2012
  2. KEPINOL [Concomitant]
     Indication: INFECTION
     Dosage: 1 DF DOSAGE FORM, TIW
  3. CIPROBAY [Concomitant]
     Indication: BACTERIAL INFECTION
     Dosage: 0.5 DF DOSAGE FORM, BID
  4. ACICLOVIR [Concomitant]
     Indication: HERPES VIRUS INFECTION
     Dosage: 0.5 DF DOSAGE FORM, BID
  5. VFEND [Concomitant]
     Indication: FUNGAL INFECTION
     Dosage: 200 MG MILLIGRAM(S), BID
  6. BELOC-ZOK [Concomitant]
     Indication: BLOOD PRESSURE
     Dosage: 1 DF DOSAGE FORM, BID
  7. PANTOZOL [Concomitant]
     Indication: PROPHYLAXIS
     Dosage: 40 MG MILLIGRAM(S), QD
  8. KALIUMJODID [Concomitant]
     Dosage: 1 DF DOSAGE FORM, UNK
  9. FOLSAN [Concomitant]
     Dosage: 5 MG MILLIGRAM(S), QD
  10. GLIBENCLAMIDE [Concomitant]
     Indication: DIABETES MELLITUS
     Dosage: 7 MG MILLIGRAM(S), QD
  11. AZITHROMYCIN [Concomitant]
     Dosage: 250 MG MILLIGRAM(S), QD
  12. METOPROLOL [Concomitant]
     Dosage: 0.5 DF DOSAGE FORM, BID
     Dates: start: 20121010
  13. FURORESE [Concomitant]
     Dosage: 0.5 DF DOSAGE FORM, QD
     Dates: start: 20121010
  14. JODID [Concomitant]
     Dosage: 1 DF DOSAGE FORM, QD
  15. OMEP [Concomitant]
     Dosage: 1 DF DOSAGE FORM, UNK
  16. FOLSAEURE [Concomitant]
     Dosage: 1 DF DOSAGE FORM, DAILY DOSE

REACTIONS (9)
  - Aplastic anaemia [Fatal]
  - Pancytopenia [Fatal]
  - Leukopenia [Fatal]
  - Thrombocytopenia [Fatal]
  - Dyspnoea [Not Recovered/Not Resolved]
  - Asthenia [Not Recovered/Not Resolved]
  - Chest discomfort [Unknown]
  - Dizziness [Not Recovered/Not Resolved]
  - Nausea [Unknown]
